FAERS Safety Report 18978316 (Version 1)
Quarter: 2021Q1

REPORT INFORMATION
  Report Type: Other
  Country: CA (occurrence: CA)
  Receive Date: 20210307
  Receipt Date: 20210307
  Transmission Date: 20210420
  Serious: Yes (Other)
  Sender: FDA-Public Use
  Company Number: CA-GLENMARK PHARMACEUTICALS-2021GMK052499

PATIENT

DRUGS (3)
  1. LIPITOR [Suspect]
     Active Substance: ATORVASTATIN CALCIUM
     Indication: BLOOD CHOLESTEROL DECREASED
     Dosage: UNK
     Route: 065
  2. EZETIMIBE. [Suspect]
     Active Substance: EZETIMIBE
     Indication: BLOOD CHOLESTEROL DECREASED
     Dosage: UNK
     Route: 065
  3. ROSUVASTATIN CALCIUM. [Suspect]
     Active Substance: ROSUVASTATIN CALCIUM
     Indication: BLOOD CHOLESTEROL DECREASED
     Dosage: UNK
     Route: 065

REACTIONS (2)
  - Drug ineffective [Unknown]
  - Myocardial infarction [Unknown]
